FAERS Safety Report 11497412 (Version 3)
Quarter: 2015Q3

REPORT INFORMATION
  Report Type: Spontaneous
  Country: BR (occurrence: BR)
  Receive Date: 20150911
  Receipt Date: 20150929
  Transmission Date: 20151125
  Serious: Yes (Other)
  Sender: FDA-Public Use
  Company Number: BR-VALIDUS PHARMACEUTICALS LLC-BR-2015VAL000563

PATIENT
  Sex: Male

DRUGS (1)
  1. PARLODEL [Suspect]
     Active Substance: BROMOCRIPTINE MESYLATE
     Indication: PRODUCT USED FOR UNKNOWN INDICATION
     Dosage: UNK

REACTIONS (6)
  - Blood prolactin increased [Unknown]
  - Erectile dysfunction [Unknown]
  - Diarrhoea [Unknown]
  - Vomiting [Unknown]
  - Cerebrovascular accident [Unknown]
  - Headache [Unknown]
